FAERS Safety Report 14992432 (Version 1)
Quarter: 2018Q2

REPORT INFORMATION
  Report Type: Report from Study
  Country: DE (occurrence: DE)
  Receive Date: 20180609
  Receipt Date: 20180609
  Transmission Date: 20180711
  Serious: Yes (Death, Hospitalization, Other)
  Sender: FDA-Public Use
  Company Number: DE-TEVA-2018-DE-904004

PATIENT
  Age: 55 Year
  Sex: Male

DRUGS (4)
  1. DEXAMETHASONE. [Suspect]
     Active Substance: DEXAMETHASONE
     Indication: PLASMA CELL MYELOMA
     Route: 065
  2. FARYDAK [Suspect]
     Active Substance: PANOBINOSTAT
     Indication: PLASMA CELL MYELOMA
     Dosage: 10 MILLIGRAM DAILY; 10 MG, QD, ONCE WEEKLY, 2 WEEKS ON, 1 WEEK OFF
     Route: 048
     Dates: start: 20170228, end: 20170624
  3. DARATUMUMAB [Concomitant]
     Active Substance: DARATUMUMAB
     Indication: PLASMA CELL MYELOMA
     Dosage: 46 MILLIGRAM DAILY;
     Route: 065
     Dates: start: 20170712
  4. BORTEZOMIB [Suspect]
     Active Substance: BORTEZOMIB
     Indication: PLASMA CELL MYELOMA
     Route: 065

REACTIONS (18)
  - Coronary artery disease [Fatal]
  - Splenomegaly [Unknown]
  - Rib fracture [Unknown]
  - Pulmonary oedema [Unknown]
  - Immunosuppression [Fatal]
  - Heart rate increased [Fatal]
  - Pleural effusion [Unknown]
  - Malignant neoplasm progression [Fatal]
  - Plasma cell myeloma [Fatal]
  - Lymphadenopathy [Fatal]
  - Pyrexia [Fatal]
  - Pancytopenia [Fatal]
  - Septic shock [Fatal]
  - Hepatic lesion [Unknown]
  - Hyperaemia [Unknown]
  - Ascites [Unknown]
  - Oedema [Unknown]
  - Infusion related reaction [Recovered/Resolved]

NARRATIVE: CASE EVENT DATE: 20170624
